FAERS Safety Report 8442893-7 (Version None)
Quarter: 2012Q2

REPORT INFORMATION
  Report Type: 
  Country: None (occurrence: None)
  Receive Date: 20120615
  Receipt Date: 20120611
  Transmission Date: 20120825
  Serious: Yes (Hospitalization, Other)
  Sender: FDA-Public Use
  Company Number: BR-PFIZER INC-2012140971

PATIENT
  Age: 71 Year
  Sex: Female

DRUGS (4)
  1. LIPITOR [Suspect]
     Indication: BLOOD CHOLESTEROL INCREASED
     Dosage: 20 MG (ONE TABLET), 1X/DAY
     Route: 048
     Dates: start: 20020101
  2. TIMOLOL MALEATE [Suspect]
     Indication: CATARACT
     Dosage: UNK
  3. ALENDRONATE SODIUM [Concomitant]
     Dosage: UNK
  4. OMEPRAZOLE [Concomitant]
     Dosage: UNK

REACTIONS (4)
  - CATARACT [None]
  - EYE DISORDER [None]
  - ASTHMATIC CRISIS [None]
  - GLAUCOMA [None]
